FAERS Safety Report 7011737-2 (Version None)
Quarter: 2010Q3

REPORT INFORMATION
  Report Type: 
  Country: None (occurrence: None)
  Receive Date: 20100923
  Receipt Date: 20090615
  Transmission Date: 20110219
  Serious: No
  Sender: FDA-Public Use
  Company Number: US-WYE-H09770609

PATIENT
  Sex: Female
  Weight: 83.54 kg

DRUGS (2)
  1. PREMARIN [Suspect]
     Indication: VULVOVAGINAL DRYNESS
     Dosage: 1 GM
     Route: 067
     Dates: start: 20090612, end: 20090612
  2. BONIVA [Concomitant]

REACTIONS (4)
  - BACK PAIN [None]
  - BURNING SENSATION [None]
  - CHEST PAIN [None]
  - HEADACHE [None]
